FAERS Safety Report 5043852-7 (Version None)
Quarter: 2006Q3

REPORT INFORMATION
  Report Type: 
  Country: None (occurrence: None)
  Receive Date: 20060706
  Receipt Date: 20060627
  Transmission Date: 20061208
  Serious: Yes (Other)
  Sender: FDA-Public Use
  Company Number: CA-JNJFOC-20060603647

PATIENT
  Age: 80 Year
  Sex: Female

DRUGS (3)
  1. REMINYL ER [Suspect]
     Indication: DEMENTIA ALZHEIMER'S TYPE
  2. EBIXA [Concomitant]
  3. ASPIRIN [Concomitant]

REACTIONS (6)
  - BRADYCARDIA [None]
  - DRUG PRESCRIBING ERROR [None]
  - LOSS OF CONSCIOUSNESS [None]
  - NAUSEA [None]
  - TRANSIENT ISCHAEMIC ATTACK [None]
  - TREATMENT NONCOMPLIANCE [None]
